FAERS Safety Report 7791470-X (Version None)
Quarter: 2011Q4

REPORT INFORMATION
  Report Type: 
  Country: None (occurrence: None)
  Receive Date: 20111003
  Receipt Date: 20110922
  Transmission Date: 20120403
  Serious: Yes (Other)
  Sender: FDA-Public Use
  Company Number: CA-US-EMD SERONO, INC.-7074147

PATIENT
  Sex: Female
  Weight: 42 kg

DRUGS (4)
  1. REBIF [Suspect]
     Route: 058
     Dates: start: 20110801, end: 20110801
  2. REBIF [Suspect]
     Route: 058
     Dates: start: 20110815, end: 20110831
  3. REBIF [Suspect]
     Indication: MULTIPLE SCLEROSIS
     Route: 058
     Dates: start: 20110622, end: 20110728
  4. REBIF [Suspect]
     Dates: start: 20110902

REACTIONS (6)
  - NEUTROPHIL COUNT DECREASED [None]
  - CYSTITIS [None]
  - MULTIPLE SCLEROSIS [None]
  - HEADACHE [None]
  - INJECTION SITE ERYTHEMA [None]
  - INJECTION SITE HAEMATOMA [None]
